FAERS Safety Report 6461823-0 (Version None)
Quarter: 2009Q4

REPORT INFORMATION
  Report Type: 
  Country: None (occurrence: None)
  Receive Date: 20091123
  Receipt Date: 20091111
  Transmission Date: 20100525
  Serious: Yes (Hospitalization)
  Sender: FDA-Public Use
  Company Number: 232995J09USA

PATIENT
  Age: 54 Year
  Sex: Male

DRUGS (5)
  1. REBIF [Suspect]
     Indication: MULTIPLE SCLEROSIS
     Dosage: 44 MCG, 3 IN 1 WEEKS, SUBCUTANEOUS
     Route: 058
     Dates: start: 20060525
  2. OXYCONTIN [Concomitant]
  3. NEURONTIN [Concomitant]
  4. LYRICA [Concomitant]
  5. EFFEXOR XR [Concomitant]

REACTIONS (7)
  - BACK PAIN [None]
  - CHILLS [None]
  - MEMORY IMPAIRMENT [None]
  - NEURALGIA [None]
  - PAIN IN EXTREMITY [None]
  - PYREXIA [None]
  - WHITE BLOOD CELL COUNT ABNORMAL [None]
